FAERS Safety Report 21540093 (Version 2)
Quarter: 2022Q4

REPORT INFORMATION
  Report Type: Other
  Country: AE (occurrence: AE)
  Receive Date: 20221102
  Receipt Date: 20221227
  Transmission Date: 20230112
  Serious: Yes (Other)
  Sender: FDA-Public Use
  Company Number: AE-002147023-NVSC2022AE231609

PATIENT
  Age: 51 Year
  Sex: Male

DRUGS (3)
  1. LUCENTIS [Suspect]
     Active Substance: RANIBIZUMAB
     Indication: Diabetic retinal oedema
     Dosage: 10 MG, QMO
     Route: 050
     Dates: start: 20210224, end: 20220831
  2. INSULIN NOS [Concomitant]
     Active Substance: INSULIN NOS
     Indication: Diabetes mellitus
     Dosage: UNK
     Route: 065
  3. VIGAMOX [Concomitant]
     Active Substance: MOXIFLOXACIN HYDROCHLORIDE
     Indication: Product used for unknown indication
     Dosage: UNK (6 TIMES A DAY FOR 4 DAYS  TO START ONE DAY BEFORE THE INJECTION)
     Route: 065

REACTIONS (7)
  - Diabetes mellitus inadequate control [Unknown]
  - Retinopathy hypertensive [Unknown]
  - Macular oedema [Unknown]
  - Diabetic retinal oedema [Unknown]
  - Disease progression [Unknown]
  - Product use issue [Unknown]
  - Loss of therapeutic response [Unknown]

NARRATIVE: CASE EVENT DATE: 20210224
